FAERS Safety Report 7227047-4 (Version None)
Quarter: 2011Q1

REPORT INFORMATION
  Report Type: 
  Country: None (occurrence: None)
  Receive Date: 20110114
  Receipt Date: 20110111
  Transmission Date: 20110831
  Serious: Yes (Other)
  Sender: FDA-Public Use
  Company Number: DE-ROCHE-532820

PATIENT
  Age: 46 Year
  Sex: Male
  Weight: 82 kg

DRUGS (9)
  1. VALGANCICLOVIR HCL [Suspect]
     Dosage: PERMANATLY DISCONTINUED
     Route: 048
     Dates: start: 20070920, end: 20071116
  2. COTRIM [Suspect]
     Route: 065
     Dates: start: 20070920, end: 20071116
  3. PROGRAF [Suspect]
     Route: 065
     Dates: start: 20070907
  4. BICA NORM [Concomitant]
     Dates: start: 20070909
  5. LOCOL [Concomitant]
     Dosage: REPORTED AS LOCOL80
     Dates: start: 20070920
  6. CELLCEPT [Concomitant]
     Dates: start: 20070907
  7. BELOC-ZOK [Concomitant]
     Dates: start: 20070907
  8. RAMIPRIL [Concomitant]
     Dates: start: 20070920
  9. NEORECORMON [Concomitant]
     Dosage: TDD REPORTED AS 10000
     Dates: start: 20070909, end: 20071025

REACTIONS (2)
  - THROMBOPHLEBITIS [None]
  - VENOUS THROMBOSIS LIMB [None]
